FAERS Safety Report 21293200 (Version 1)
Quarter: 2022Q3

REPORT INFORMATION
  Report Type: Spontaneous
  Country: CA (occurrence: CA)
  Receive Date: 20220905
  Receipt Date: 20220905
  Transmission Date: 20221027
  Serious: Yes (Other)
  Sender: FDA-Public Use
  Company Number: CA-UCBSA-2022052049

PATIENT
  Sex: Male
  Weight: 91 kg

DRUGS (3)
  1. KEPPRA [Suspect]
     Active Substance: LEVETIRACETAM
     Indication: Product used for unknown indication
     Dosage: UNK
  2. BRIVARACETAM [Suspect]
     Active Substance: BRIVARACETAM
     Indication: Post stroke seizure
     Dosage: 100 MILLIGRAM, 2X/DAY (BID)
     Route: 048
     Dates: start: 20190527, end: 20210419
  3. CLOBAZAM [Concomitant]
     Active Substance: CLOBAZAM
     Indication: Post stroke seizure
     Dosage: 10 MILLIGRAM, ONCE DAILY (QD)
     Route: 048
     Dates: start: 20180303, end: 20210401

REACTIONS (8)
  - Seizure [Unknown]
  - Decreased appetite [Unknown]
  - Cognitive disorder [Unknown]
  - Balance disorder [Unknown]
  - Disturbance in attention [Unknown]
  - Memory impairment [Unknown]
  - Mental disorder [Unknown]
  - Drug intolerance [Unknown]
